FAERS Safety Report 7296627-2 (Version None)
Quarter: 2011Q1

REPORT INFORMATION
  Report Type: 
  Country: None (occurrence: None)
  Receive Date: 20110216
  Receipt Date: 20110209
  Transmission Date: 20110831
  Serious: Yes (Other)
  Sender: FDA-Public Use
  Company Number: PHHY2011MX10979

PATIENT
  Sex: Female

DRUGS (2)
  1. GALVUS [Suspect]
     Indication: DIABETES MELLITUS
     Dosage: 50 MG, QD
     Dates: start: 20100511
  2. EXELON [Suspect]
     Indication: MEMORY IMPAIRMENT
     Dosage: PATCH 5 CM2
     Route: 062
     Dates: start: 20100501

REACTIONS (5)
  - ARTHROPATHY [None]
  - CONDITION AGGRAVATED [None]
  - INSOMNIA [None]
  - GAIT DISTURBANCE [None]
  - MEMORY IMPAIRMENT [None]
